FAERS Safety Report 13079574 (Version 1)
Quarter: 2017Q1

REPORT INFORMATION
  Report Type: Spontaneous
  Country: SE (occurrence: SE)
  Receive Date: 20170103
  Receipt Date: 20170103
  Transmission Date: 20170428
  Serious: Yes (Other)
  Sender: FDA-Public Use
  Company Number: SE-CIPLA LTD.-2016SE24113

PATIENT

DRUGS (1)
  1. LAMOTRIGINE. [Suspect]
     Active Substance: LAMOTRIGINE
     Dosage: UNK
     Route: 048

REACTIONS (5)
  - Acne [Not Recovered/Not Resolved]
  - Hirsutism [Not Recovered/Not Resolved]
  - Tinnitus [Not Recovered/Not Resolved]
  - Seborrhoea [Not Recovered/Not Resolved]
  - Hot flush [Not Recovered/Not Resolved]
